FAERS Safety Report 8553342-2 (Version None)
Quarter: 2012Q3

REPORT INFORMATION
  Report Type: 
  Country: None (occurrence: None)
  Receive Date: 20120731
  Receipt Date: 20120719
  Transmission Date: 20120928
  Serious: Yes (Other)
  Sender: FDA-Public Use
  Company Number: NL-CELGENEUS-114-21880-12071992

PATIENT
  Sex: Female
  Weight: 59 kg

DRUGS (5)
  1. REVLIMID [Suspect]
     Indication: MULTIPLE MYELOMA
     Route: 048
     Dates: start: 20120313
  2. SOTALOL HYDROCHLORIDE [Concomitant]
     Route: 065
  3. OMEPRAZOLE [Concomitant]
     Indication: PROPHYLAXIS
     Route: 048
  4. APO [Concomitant]
     Route: 065
     Dates: start: 20100315
  5. MOVICELA [Concomitant]
     Route: 065

REACTIONS (1)
  - MENINGIOMA [None]
